FAERS Safety Report 4262085-5 (Version None)
Quarter: 2004Q1

REPORT INFORMATION
  Report Type: 
  Country: None (occurrence: None)
  Receive Date: 20040102
  Receipt Date: 20031222
  Transmission Date: 20041129
  Serious: Yes (Other)
  Sender: FDA-Public Use
  Company Number: JP-GLAXOSMITHKLINE-B0318648A

PATIENT
  Age: 21 Year
  Sex: Female

DRUGS (5)
  1. EPOPROSTENOL [Suspect]
     Indication: PULMONARY HYPERTENSION
     Route: 042
     Dates: start: 20011120
  2. DIPYRIDAMOLE [Suspect]
     Route: 048
  3. WARFARIN POTASSIUM [Suspect]
     Route: 048
  4. FUROSEMIDE [Concomitant]
  5. ENALAPRIL MALEATE [Concomitant]

REACTIONS (1)
  - HAEMOPTYSIS [None]
